FAERS Safety Report 9032747 (Version 2)
Quarter: 2013Q1

REPORT INFORMATION
  Report Type: Spontaneous
  Country: CH (occurrence: CH)
  Receive Date: 20130128
  Receipt Date: 20130305
  Transmission Date: 20140127
  Serious: Yes (Hospitalization)
  Sender: FDA-Public Use
  Company Number: CH-BIOGENIDEC-2013BI006909

PATIENT
  Age: 55 Year
  Sex: Female

DRUGS (3)
  1. AVONEX [Suspect]
     Indication: MULTIPLE SCLEROSIS
     Route: 030
     Dates: start: 20110119
  2. BACLOFEN [Concomitant]
  3. TIZANIDIN [Concomitant]

REACTIONS (4)
  - Femur fracture [Unknown]
  - Fall [Unknown]
  - Balance disorder [Unknown]
  - Influenza like illness [Not Recovered/Not Resolved]
